FAERS Safety Report 4880298-6 (Version None)
Quarter: 2006Q1

REPORT INFORMATION
  Report Type: 
  Country: None (occurrence: None)
  Receive Date: 20060111
  Receipt Date: 20051229
  Transmission Date: 20060701
  Serious: Yes (Hospitalization, Other)
  Sender: FDA-Public Use
  Company Number: 2006001076

PATIENT
  Sex: Male
  Weight: 90.2658 kg

DRUGS (8)
  1. VIAGRA [Suspect]
     Indication: ERECTILE DYSFUNCTION
     Dosage: 50 MG (50 MG, AS NECESSARY)
  2. CARDURA [Suspect]
     Indication: PROSTATE EXAMINATION ABNORMAL
     Dosage: 4 MG (4 MG, 1 IN 1 D)
  3. LIPITOR [Suspect]
     Indication: ILL-DEFINED DISORDER
     Dosage: 40 MG (20 MG, 2 IN 2 D)
     Dates: start: 20040101
  4. DOXAZOSIN (DOXAZOSIN) [Suspect]
     Indication: PROSTATE EXAMINATION ABNORMAL
     Dosage: 4 MG (4 MG, 1 IN 1 D)
  5. COREG [Suspect]
     Indication: ILL-DEFINED DISORDER
     Dosage: 12.5 MG (12.5 MG, 1 IN 1 D)
     Dates: start: 20040101
  6. ALTACE [Suspect]
     Indication: ILL-DEFINED DISORDER
     Dosage: 10 MG (10 MG, 1 IN 1 D)
     Dates: start: 20040101
  7. TAMSULOSIN HCL [Concomitant]
  8. ALLOPURINOL [Concomitant]

REACTIONS (6)
  - BLOOD CHOLESTEROL INCREASED [None]
  - ERECTILE DYSFUNCTION [None]
  - HEADACHE [None]
  - LIBIDO DECREASED [None]
  - MYOCARDIAL INFARCTION [None]
  - STENT OCCLUSION [None]
